FAERS Safety Report 6905784-6 (Version None)
Quarter: 2010Q3

REPORT INFORMATION
  Report Type: 
  Country: None (occurrence: None)
  Receive Date: 20100804
  Receipt Date: 20100729
  Transmission Date: 20110219
  Serious: Yes (Life-Threatening, Other)
  Sender: FDA-Public Use
  Company Number: JP-ASTRAZENECA-2010SE35981

PATIENT
  Age: 48 Year
  Sex: Female
  Weight: 48 kg

DRUGS (20)
  1. SEROQUEL [Suspect]
     Indication: INSOMNIA
     Route: 048
     Dates: start: 20100324, end: 20100412
  2. GASTER [Suspect]
     Route: 042
     Dates: start: 20100308, end: 20100309
  3. GASTER [Suspect]
     Route: 042
     Dates: start: 20100317, end: 20100320
  4. GASTER [Suspect]
     Route: 048
     Dates: start: 20100321, end: 20100405
  5. MUCODYNE [Suspect]
     Route: 048
     Dates: start: 20100330, end: 20100410
  6. CLONAZEPAM [Suspect]
     Indication: ANXIETY
     Route: 048
     Dates: start: 20100407, end: 20100411
  7. SILECE [Suspect]
     Indication: INSOMNIA
     Route: 048
     Dates: start: 20100321, end: 20100412
  8. ENTERONON [Concomitant]
  9. ROCEPHIN [Concomitant]
  10. DEXMEDETOMIDINE HYDROCHLORIDE [Concomitant]
  11. SERENACE [Concomitant]
  12. ZOSYN [Concomitant]
  13. MYSLEE [Concomitant]
  14. ALPRAZOLAM [Concomitant]
  15. PENTACILLIN [Concomitant]
  16. PROPOFOL [Concomitant]
  17. WARFARIN SODIUM [Concomitant]
  18. HEPARIN SODIUM [Concomitant]
  19. DESYREL [Concomitant]
  20. LENDORMIN [Concomitant]

REACTIONS (2)
  - STEVENS-JOHNSON SYNDROME [None]
  - TOXIC EPIDERMAL NECROLYSIS [None]
